FAERS Safety Report 5531481-8 (Version None)
Quarter: 2007Q4

REPORT INFORMATION
  Report Type: 
  Country: None (occurrence: None)
  Receive Date: 20071203
  Receipt Date: 20071127
  Transmission Date: 20080405
  Serious: Yes (Death, Hospitalization)
  Sender: FDA-Public Use
  Company Number: CA-ELI_LILLY_AND_COMPANY-CA200710003638

PATIENT
  Age: 90 Year
  Sex: Female
  Weight: 40.816 kg

DRUGS (4)
  1. ZYPREXA ZYDIS [Suspect]
     Indication: AGITATED DEPRESSION
     Dosage: 15 MG, DAILY (1/D)
     Dates: start: 20060314
  2. TRAZODONE HCL [Concomitant]
     Dosage: 100 MG, 4/D
     Dates: start: 20060317
  3. TRAZODONE HCL [Concomitant]
     Dosage: 350 MG, DAILY (1/D)
  4. MORPHINE [Concomitant]

REACTIONS (6)
  - BEDRIDDEN [None]
  - CHOKING [None]
  - DEATH [None]
  - DYSPHAGIA [None]
  - PNEUMONIA ASPIRATION [None]
  - SEDATION [None]
